FAERS Safety Report 7014862-5 (Version None)
Quarter: 2010Q3

REPORT INFORMATION
  Report Type: 
  Country: None (occurrence: None)
  Receive Date: 20100927
  Receipt Date: 20100727
  Transmission Date: 20110219
  Serious: No
  Sender: FDA-Public Use
  Company Number: US-ASTRAZENECA-2010SE35343

PATIENT
  Sex: Female

DRUGS (1)
  1. ARIMIDEX [Suspect]
     Dosage: EVERY OTHER DAY
     Route: 048

REACTIONS (2)
  - INAPPROPRIATE SCHEDULE OF DRUG ADMINISTRATION [None]
  - STAPHYLOCOCCAL INFECTION [None]
